FAERS Safety Report 9948856 (Version 2)
Quarter: 2014Q1

REPORT INFORMATION
  Report Type: Spontaneous
  Country: NL (occurrence: NL)
  Receive Date: 20140304
  Receipt Date: 20140304
  Transmission Date: 20141002
  Serious: Yes (Other)
  Sender: FDA-Public Use
  Company Number: NL-AMGEN-NLDSP2014005028

PATIENT
  Age: 52 Year
  Sex: Female

DRUGS (3)
  1. ENBREL [Suspect]
     Indication: ANKYLOSING SPONDYLITIS
     Dosage: 50 MG, WEEKLY
     Route: 065
     Dates: start: 20131025, end: 2014
  2. CELEBREX [Concomitant]
     Dosage: UNK
  3. OMEPRAZOL                          /00661201/ [Concomitant]
     Dosage: UNK

REACTIONS (4)
  - Ankylosing spondylitis [Unknown]
  - Dental caries [Unknown]
  - Sinusitis [Recovering/Resolving]
  - Nasopharyngitis [Recovering/Resolving]
